FAERS Safety Report 7703381-6 (Version None)
Quarter: 2011Q3

REPORT INFORMATION
  Report Type: 
  Country: None (occurrence: None)
  Receive Date: 20110823
  Receipt Date: 20110809
  Transmission Date: 20111222
  Serious: No
  Sender: FDA-Public Use
  Company Number: US-B.I. PHARMACEUTICALS,INC./RIDGEFIELD-2011-BP-19587BP

PATIENT
  Sex: Female

DRUGS (8)
  1. CALCITRIOL [Concomitant]
     Indication: BLOOD CALCIUM DECREASED
     Dates: start: 20010101
  2. ZYRTEC [Concomitant]
     Indication: HYPERSENSITIVITY
     Dosage: 10 MG
     Route: 048
     Dates: start: 20000101
  3. EFFEXOR [Concomitant]
     Indication: HOT FLUSH
     Dosage: 150 MG
     Route: 048
     Dates: start: 20010101
  4. EXFORGE [Concomitant]
     Indication: HYPERTENSION
     Dates: start: 20100101
  5. TRIAMTERENE AND HYDROCHLOROTHIAZIDE [Concomitant]
     Indication: OEDEMA
     Dates: start: 20050101
  6. PRADAXA [Suspect]
     Indication: ATRIAL FIBRILLATION
     Dosage: 300 MG
     Route: 048
     Dates: start: 20110601
  7. PLAVIX [Concomitant]
     Indication: CAROTID ARTERY OCCLUSION
     Dosage: 75 MG
     Route: 048
     Dates: start: 20020101
  8. CARVEDILOL [Suspect]
     Indication: HYPERTENSION
     Dosage: 6.25 MG
     Route: 048
     Dates: start: 20110601

REACTIONS (2)
  - DYSGEUSIA [None]
  - MOUTH HAEMORRHAGE [None]
